FAERS Safety Report 10279144 (Version 1)
Quarter: 2014Q3

REPORT INFORMATION
  Report Type: Spontaneous
  Country: GB (occurrence: GB)
  Receive Date: 20140707
  Receipt Date: 20140707
  Transmission Date: 20150326
  Serious: Yes (Other)
  Sender: FDA-Public Use
  Company Number: GB-ACCORD-024502

PATIENT
  Age: 5 Year
  Sex: Male
  Weight: 25 kg

DRUGS (5)
  1. MONTELUKAST [Suspect]
     Active Substance: MONTELUKAST SODIUM
     Indication: PRODUCT USED FOR UNKNOWN INDICATION
  2. FLUCLOXACILLIN [Concomitant]
     Active Substance: FLUCLOXACILLIN
     Dates: start: 20140328, end: 20140404
  3. TERBINAFINE/TERBINAFINE HYDROCHLORIDE [Concomitant]
     Dates: start: 20140417, end: 20140501
  4. CLENIL MODULITE [Concomitant]
     Active Substance: BECLOMETHASONE DIPROPIONATE
     Dates: start: 20140203, end: 20140513
  5. AMOXICILLIN. [Concomitant]
     Active Substance: AMOXICILLIN
     Dates: start: 20140508, end: 20140515

REACTIONS (4)
  - Insomnia [Unknown]
  - Abnormal behaviour [Unknown]
  - Decreased appetite [Unknown]
  - Nightmare [Unknown]

NARRATIVE: CASE EVENT DATE: 20140514
